FAERS Safety Report 8022704-4 (Version None)
Quarter: 2012Q1

REPORT INFORMATION
  Report Type: 
  Country: None (occurrence: None)
  Receive Date: 20120104
  Receipt Date: 20111230
  Transmission Date: 20120608
  Serious: Yes (Other)
  Sender: FDA-Public Use
  Company Number: DE-SANOFI-AVENTIS-2011SA085666

PATIENT
  Sex: Female

DRUGS (2)
  1. ENOXAPARIN SODIUM [Suspect]
     Indication: THROMBOSIS PROPHYLAXIS
     Route: 065
     Dates: start: 20111201
  2. BENZODIAZEPINE DERIVATIVES [Interacting]
     Indication: EPILEPSY
     Route: 065

REACTIONS (2)
  - EPILEPSY [None]
  - DRUG INTERACTION [None]
